FAERS Safety Report 25447593 (Version 2)
Quarter: 2025Q4

REPORT INFORMATION
  Report Type: Spontaneous
  Country: BR (occurrence: None)
  Receive Date: 20250617
  Receipt Date: 20251120
  Transmission Date: 20260117
  Serious: Yes (Hospitalization, Other)
  Sender: AMERICAN REGENT
  Company Number: BR-AMERICAN REGENT INC-2025002411

PATIENT
  Age: 33 Year
  Sex: Female
  Weight: 78 kg

DRUGS (3)
  1. VENOFER [Suspect]
     Active Substance: IRON SUCROSE
     Indication: Anaemia
     Dosage: EVERY OTHER DAY
  2. VENOFER [Suspect]
     Active Substance: IRON SUCROSE
     Indication: Serum ferritin decreased
  3. DULOXETINE [Concomitant]
     Active Substance: DULOXETINE
     Indication: Product used for unknown indication
     Dosage: UNK
     Route: 065

REACTIONS (8)
  - Vaginal haemorrhage [Recovered/Resolved]
  - Cervical dilatation [Recovered/Resolved]
  - Arrhythmia [Not Recovered/Not Resolved]
  - Heart rate decreased [Unknown]
  - Product storage error [Recovered/Resolved]
  - Off label use [Recovered/Resolved]
  - Product preparation issue [Recovered/Resolved]
  - Product preparation issue [Not Recovered/Not Resolved]

NARRATIVE: CASE EVENT DATE: 20230101
